FAERS Safety Report 8163160-5 (Version None)
Quarter: 2012Q1

REPORT INFORMATION
  Report Type: 
  Country: None (occurrence: None)
  Receive Date: 20120224
  Receipt Date: 20110909
  Transmission Date: 20120608
  Serious: No
  Sender: FDA-Public Use
  Company Number: US-PFIZER INC-K201101049

PATIENT
  Sex: Male
  Weight: 108.84 kg

DRUGS (2)
  1. FLECTOR [Suspect]
     Indication: CHEST PAIN
     Dosage: UNK PATCH, PRN
     Route: 061
     Dates: start: 20110801, end: 20110101
  2. FLECTOR [Suspect]
     Dosage: UNK PATCH, PRN
     Route: 061
     Dates: start: 20110901

REACTIONS (3)
  - VOMITING [None]
  - MALAISE [None]
  - BLOOD PRESSURE DECREASED [None]
